FAERS Safety Report 8788632 (Version 3)
Quarter: 2013Q2

REPORT INFORMATION
  Report Type: Spontaneous
  Country: US (occurrence: US)
  Receive Date: 20120917
  Receipt Date: 20130410
  Transmission Date: 20140414
  Serious: No
  Sender: FDA-Public Use
  Company Number: US-009507513-1208USA012215

PATIENT
  Age: 48 Year
  Sex: Male

DRUGS (5)
  1. VICTRELIS [Suspect]
     Dosage: 800 MG, TID
     Route: 048
     Dates: start: 20120814
  2. PEGASYS [Suspect]
  3. RIBASPHERE [Suspect]
  4. VALIUM [Concomitant]
  5. LISINOPRIL [Concomitant]

REACTIONS (1)
  - Mood swings [Unknown]
